FAERS Safety Report 4273395-X (Version None)
Quarter: 2004Q1

REPORT INFORMATION
  Report Type: 
  Country: None (occurrence: None)
  Receive Date: 20040114
  Receipt Date: 20040106
  Transmission Date: 20041129
  Serious: Yes (Death, Hospitalization)
  Sender: FDA-Public Use
  Company Number: GB-JNJFOC-20040100583

PATIENT
  Age: 70 Year
  Sex: Male

DRUGS (1)
  1. DURAGESIC [Suspect]
     Indication: CANCER PAIN
     Dosage: 25 UG/HR, TRANSDERMAL
     Route: 062

REACTIONS (5)
  - CYANOSIS CENTRAL [None]
  - GENERAL PHYSICAL HEALTH DETERIORATION [None]
  - MIOSIS [None]
  - RESPIRATORY DEPRESSION [None]
  - SEDATION [None]
